FAERS Safety Report 25280083 (Version 1)
Quarter: 2025Q2

REPORT INFORMATION
  Report Type: Report from Study
  Country: US (occurrence: US)
  Receive Date: 20250507
  Receipt Date: 20250507
  Transmission Date: 20250716
  Serious: Yes (Hospitalization, Other)
  Sender: SANOFI AVENTIS
  Company Number: US-SA-2025SA043398

PATIENT
  Age: 68 Year
  Sex: Female

DRUGS (25)
  1. DUPILUMAB [Suspect]
     Active Substance: DUPILUMAB
     Indication: Chronic obstructive pulmonary disease
     Dosage: 300 MG, QOW
     Route: 058
     Dates: start: 20241120
  2. LEVOTHYROXINE [Concomitant]
     Active Substance: LEVOTHYROXINE
  3. DAPSONE [Concomitant]
     Active Substance: DAPSONE
  4. TYLENOL [Concomitant]
     Active Substance: ACETAMINOPHEN
  5. CODEINE [Concomitant]
     Active Substance: CODEINE
  6. CLARITIN [Concomitant]
     Active Substance: LORATADINE
  7. MUCINEX [Concomitant]
     Active Substance: GUAIFENESIN
  8. PREDNISONE [Concomitant]
     Active Substance: PREDNISONE
  9. ATIVAN [Concomitant]
     Active Substance: LORAZEPAM
  10. AZITHROMYCIN [Concomitant]
     Active Substance: AZITHROMYCIN
  11. MELATONIN [Concomitant]
     Active Substance: MELATONIN
  12. ASPIRIN [Concomitant]
     Active Substance: ASPIRIN
  13. MONTELUKAST [Concomitant]
     Active Substance: MONTELUKAST
  14. TYLENOL PM EXTRA STRENGTH [Concomitant]
     Active Substance: ACETAMINOPHEN\DIPHENHYDRAMINE HYDROCHLORIDE
  15. ASPIRIN [Concomitant]
     Active Substance: ASPIRIN
  16. ZITHROMAX [Concomitant]
     Active Substance: AZITHROMYCIN DIHYDRATE
  17. LEVOTHROID [Concomitant]
     Active Substance: LEVOTHYROXINE SODIUM
  18. CODEINE PHOSPHATE [Concomitant]
     Active Substance: CODEINE PHOSPHATE
  19. ACZONE [Concomitant]
     Active Substance: DAPSONE
  20. DICYCLOMINE HYDROCHLORIDE [Concomitant]
     Active Substance: DICYCLOMINE HYDROCHLORIDE
  21. SINGULAIR [Concomitant]
     Active Substance: MONTELUKAST SODIUM
  22. LIPITOR [Concomitant]
     Active Substance: ATORVASTATIN CALCIUM
  23. CEFDINIR [Concomitant]
     Active Substance: CEFDINIR
  24. OHTUVAYRE [Concomitant]
     Active Substance: ENSIFENTRINE
  25. ATORVASTATIN [Concomitant]
     Active Substance: ATORVASTATIN

REACTIONS (3)
  - Ankle fracture [Recovering/Resolving]
  - Pneumonia [Unknown]
  - Upper respiratory tract infection [Unknown]

NARRATIVE: CASE EVENT DATE: 20250301
